FAERS Safety Report 16130021 (Version 1)
Quarter: 2019Q1

REPORT INFORMATION
  Report Type: Spontaneous
  Country: IT (occurrence: GB)
  Receive Date: 20190328
  Receipt Date: 20190328
  Transmission Date: 20190418
  Serious: Yes (Other)
  Sender: FDA-Public Use
  Company Number: IT-IPSEN BIOPHARMACEUTICALS, INC.-2019-04839

PATIENT
  Age: 64 Year
  Sex: Female

DRUGS (3)
  1. BOTULINUM TOXIN TYPE A NOS [Suspect]
     Active Substance: BOTULINUM TOXIN TYPE A
     Indication: BLEPHAROSPASM
     Dosage: 100 UNITS (50 U LEFT EYE AND 50 U RIGHT EYE)
     Route: 065
  2. BOTULINUM TOXIN TYPE A NOS [Suspect]
     Active Substance: BOTULINUM TOXIN TYPE A
     Indication: WRITER^S CRAMP
  3. BOTULINUM TOXIN TYPE A NOS [Suspect]
     Active Substance: BOTULINUM TOXIN TYPE A
     Indication: OFF LABEL USE

REACTIONS (2)
  - Radiculitis brachial [Recovered/Resolved]
  - Off label use [Unknown]
